FAERS Safety Report 5643164-4 (Version None)
Quarter: 2008Q1

REPORT INFORMATION
  Report Type: 
  Country: None (occurrence: None)
  Receive Date: 20080228
  Receipt Date: 20080225
  Transmission Date: 20080703
  Serious: Yes (Death)
  Sender: FDA-Public Use
  Company Number: JP-AVENTIS-200810492JP

PATIENT
  Age: 65 Year
  Sex: Male

DRUGS (2)
  1. CEFOTAX [Suspect]
     Dates: start: 20060501, end: 20060501
  2. UNKNOWN DRUG [Suspect]

REACTIONS (1)
  - TOXIC EPIDERMAL NECROLYSIS [None]
